FAERS Safety Report 15348409 (Version 2)
Quarter: 2018Q3

REPORT INFORMATION
  Report Type: Report from Study
  Country: US (occurrence: US)
  Receive Date: 20180904
  Receipt Date: 20180919
  Transmission Date: 20181010
  Serious: Yes (Hospitalization, Other)
  Sender: FDA-Public Use
  Company Number: US-THERATECHNOLOGIES, INC.-TH-2018-00348

PATIENT

DRUGS (9)
  1. TIVICAY [Concomitant]
     Active Substance: DOLUTEGRAVIR SODIUM
  2. EGRIFTA [Suspect]
     Active Substance: TESAMORELIN
     Indication: NON-ALCOHOLIC STEATOHEPATITIS
     Dosage: 2 MG MILLIGRAM(S), DAILY DOSE
     Route: 058
  3. TESTOSTERONE. [Concomitant]
     Active Substance: TESTOSTERONE
     Dosage: UNK
  4. FERROUS SULFATE. [Concomitant]
     Active Substance: FERROUS SULFATE
     Dosage: UNK
  5. PROTONIX [Concomitant]
     Active Substance: PANTOPRAZOLE SODIUM
     Dosage: UNK
  6. VITAMIN D                          /00107901/ [Concomitant]
     Active Substance: ERGOCALCIFEROL
     Dosage: UNK
  7. OTHER THERAPEUTIC PRODUCTS [Concomitant]
     Active Substance: UNSPECIFIED INGREDIENT
     Dosage: UNK
  8. ASPIRIN. [Concomitant]
     Active Substance: ASPIRIN
     Dosage: UNK
  9. GABAPENTIN. [Concomitant]
     Active Substance: GABAPENTIN
     Dosage: UNK

REACTIONS (1)
  - Abscess soft tissue [Recovered/Resolved with Sequelae]

NARRATIVE: CASE EVENT DATE: 20180808
